FAERS Safety Report 5505199-1 (Version None)
Quarter: 2007Q4

REPORT INFORMATION
  Report Type: 
  Country: None (occurrence: None)
  Receive Date: 20071102
  Receipt Date: 20071029
  Transmission Date: 20080405
  Serious: Yes (Other)
  Sender: FDA-Public Use
  Company Number: US-ASTRAZENECA-2007UW22545

PATIENT
  Age: 7 Year
  Sex: Female

DRUGS (2)
  1. SEROQUEL [Suspect]
     Dosage: 50 MG QAM AND 200 MG HS
     Route: 048
     Dates: start: 20070524, end: 20070927
  2. CONCERTA [Suspect]
     Route: 048
     Dates: start: 20070827

REACTIONS (4)
  - AORTIC VALVE INCOMPETENCE [None]
  - MITRAL VALVE INCOMPETENCE [None]
  - SINUS ARRHYTHMIA [None]
  - VENTRICULAR HYPERTROPHY [None]
